FAERS Safety Report 21552277 (Version 8)
Quarter: 2023Q1

REPORT INFORMATION
  Report Type: Spontaneous
  Country: GB (occurrence: GB)
  Receive Date: 20221104
  Receipt Date: 20230310
  Transmission Date: 20230417
  Serious: Yes (Death, Other)
  Sender: FDA-Public Use
  Company Number: GB-BEH-2022151397

PATIENT
  Age: 18 Year
  Sex: Male
  Weight: 59 kg

DRUGS (5)
  1. RIASTAP [Suspect]
     Active Substance: FIBRINOGEN HUMAN
     Indication: Factor I deficiency
     Dosage: 2 GRAM, EVERY 2 DAYS
     Route: 042
     Dates: start: 2004, end: 20221015
  2. RIASTAP [Suspect]
     Active Substance: FIBRINOGEN HUMAN
     Indication: Prophylaxis
     Dosage: UNK
     Route: 065
  3. RIASTAP [Suspect]
     Active Substance: FIBRINOGEN HUMAN
     Dosage: UNK
     Route: 065
  4. HAEMOCOMPLETTAN P [Suspect]
     Active Substance: FIBRINOGEN HUMAN
     Indication: Factor I deficiency
     Dosage: UNK
     Route: 065
     Dates: start: 200406, end: 20221003
  5. HAEMOCOMPLETTAN P [Suspect]
     Active Substance: FIBRINOGEN HUMAN
     Indication: Prophylaxis

REACTIONS (6)
  - Hepatitis E [Fatal]
  - Suspected transmission of an infectious agent via product [Fatal]
  - No adverse event [Unknown]
  - Off label use [Unknown]
  - Intestinal infarction [Fatal]
  - Multiple organ dysfunction syndrome [Fatal]

NARRATIVE: CASE EVENT DATE: 20221001
